FAERS Safety Report 11292748 (Version 1)
Quarter: 2015Q2

REPORT INFORMATION
  Report Type: Spontaneous
  Country: US (occurrence: None)
  Receive Date: 20150623
  Receipt Date: 20150623
  Transmission Date: 20150821
  Serious: Yes (Hospitalization, Other)
  Sender: FDA-Public Use
  Company Number: RB-69413-2014

PATIENT
  Age: 68 Year
  Sex: Female

DRUGS (5)
  1. DEXTROMETHORPHAN/GUAIFENESIN 1200 MG (RB RECKITT BENCKISER)) [Suspect]
     Active Substance: DEXTROMETHORPHAN\GUAIFENESIN
     Indication: COUGH
     Dosage: (1200 MG TOTAL UNKNOWN)
     Dates: start: 20140928
  2. ASPIRIN 1 DF [Suspect]
     Active Substance: ASPIRIN
     Indication: PRODUCT USED FOR UNKNOWN INDICATION
     Dosage: (2 DF 1X, AMOUNT USED: 2 DOSES. UNKNOWN)
     Dates: start: 20140929
  3. CALCIUM [Concomitant]
     Active Substance: CALCIUM
  4. VITAMIN B COMPLEX [Concomitant]
     Active Substance: CYANOCOBALAMIN\DEXPANTHENOL\NIACINAMIDE\PYRIDOXINE HYDROCHLORIDE\RIBOFLAVIN 5^-PHOSPHATE SODIUM\THIAMINE HYDROCHLORIDE\VITAMIN B COMPLEX
  5. LOSARTAN [Concomitant]
     Active Substance: LOSARTAN

REACTIONS (8)
  - Electrocardiogram abnormal [None]
  - Discomfort [None]
  - Chest discomfort [None]
  - Hypersensitivity [None]
  - Blood pressure increased [None]
  - Dizziness [None]
  - Nausea [None]
  - Aphagia [None]

NARRATIVE: CASE EVENT DATE: 20140929
